FAERS Safety Report 5073038-1 (Version None)
Quarter: 2006Q3

REPORT INFORMATION
  Report Type: 
  Country: None (occurrence: None)
  Receive Date: 20060802
  Receipt Date: 20060718
  Transmission Date: 20061208
  Serious: Yes (Other)
  Sender: FDA-Public Use
  Company Number: 2006EU002120

PATIENT
  Age: 73 Year
  Sex: Male

DRUGS (3)
  1. PROGRAF [Suspect]
     Indication: HEART TRANSPLANT
  2. PREDNISONE TAB [Suspect]
     Indication: HEART TRANSPLANT
  3. AZATHIOPRINE [Suspect]
     Indication: HEART TRANSPLANT

REACTIONS (5)
  - ACTINIC KERATOSIS [None]
  - BASAL CELL CARCINOMA [None]
  - EXTRA-OSSEOUS EWING'S SARCOMA RECURRENT [None]
  - METASTASES TO SALIVARY GLAND [None]
  - SQUAMOUS CELL CARCINOMA [None]
